FAERS Safety Report 7423748-3 (Version None)
Quarter: 2011Q2

REPORT INFORMATION
  Report Type: 
  Country: None (occurrence: None)
  Receive Date: 20110407
  Receipt Date: 20110328
  Transmission Date: 20111010
  Serious: Yes (Other)
  Sender: FDA-Public Use
  Company Number: TRP_07620_2011

PATIENT
  Age: 56 Year
  Sex: Male

DRUGS (4)
  1. RIBAVIRIN [Suspect]
     Indication: HEPATITIS C
     Dosage: 800 MG, DAILY, DF REDUCED
  2. RIBAVIRIN [Suspect]
     Indication: HEPATITIS C
     Dosage: 800 MG, DAILY, DF REDUCED
  3. PEGINTERFERON ALFA-2B [Suspect]
     Dosage: 120?G 1X/WEEK, DF REDUCED
  4. PEGINTERFERON ALFA-2B [Suspect]
     Dosage: 120?G 1X/WEEK, DF REDUCED

REACTIONS (3)
  - NEUTROPENIA [None]
  - TREATMENT NONCOMPLIANCE [None]
  - CONVULSION [None]
